FAERS Safety Report 11856550 (Version 1)
Quarter: 2015Q4

REPORT INFORMATION
  Report Type: Spontaneous
  Country: US (occurrence: US)
  Receive Date: 20151221
  Receipt Date: 20151221
  Transmission Date: 20160305
  Serious: No
  Sender: FDA-Public Use
  Company Number: US-AVANIR PHARMACEUTICALS, INC.-2015NUEUSA00538

PATIENT

DRUGS (2)
  1. NUEDEXTA [Suspect]
     Active Substance: DEXTROMETHORPHAN HYDROBROMIDE\QUINIDINE SULFATE
     Indication: PRODUCT USED FOR UNKNOWN INDICATION
     Dosage: 1 CAP, QD
     Route: 048
     Dates: start: 2015, end: 20150504
  2. LITHIUM. [Suspect]
     Active Substance: LITHIUM
     Indication: BIPOLAR DISORDER
     Dosage: 450 UNK, BID
     Dates: end: 20150521

REACTIONS (4)
  - Off label use [Unknown]
  - Agitation [Recovering/Resolving]
  - Drug administered to patient of inappropriate age [Unknown]
  - Abnormal behaviour [Recovering/Resolving]
